FAERS Safety Report 13921100 (Version 1)
Quarter: 2017Q3

REPORT INFORMATION
  Report Type: Spontaneous
  Country: MY (occurrence: MY)
  Receive Date: 20170830
  Receipt Date: 20170830
  Transmission Date: 20171127
  Serious: Yes (Hospitalization)
  Sender: FDA-Public Use
  Company Number: MY-PFIZER INC-2017312872

PATIENT
  Age: 47 Year
  Sex: Female

DRUGS (4)
  1. ANZATAX (PACLITAXEL) [Suspect]
     Active Substance: PACLITAXEL
     Indication: OVARIAN CANCER STAGE III
     Dosage: 236.3 MG, 175MG/M2 DAY 1, CYCLIC
     Route: 042
     Dates: start: 20170621
  2. DBL CARBOPLATIN [Suspect]
     Active Substance: CARBOPLATIN
     Indication: OVARIAN CANCER STAGE III
     Dosage: 700 MG, AUC5 DAY 1, CYCLIC
     Route: 042
     Dates: start: 20170621
  3. DBL CARBOPLATIN [Suspect]
     Active Substance: CARBOPLATIN
     Indication: BREAST CANCER FEMALE
     Dosage: 700 MG, AUC5 DAY 1, CYCLIC
     Route: 042
     Dates: start: 20170718, end: 2017
  4. ANZATAX (PACLITAXEL) [Suspect]
     Active Substance: PACLITAXEL
     Indication: BREAST CANCER FEMALE
     Dosage: 236.3 MG, 175MG/M2 DAY 1, CYCLIC
     Route: 042
     Dates: start: 20170718, end: 2017

REACTIONS (5)
  - Pruritus generalised [Recovered/Resolved]
  - Dyspnoea [Recovered/Resolved]
  - Pallor [Recovered/Resolved]
  - Rash generalised [Recovered/Resolved]
  - Pallor [None]

NARRATIVE: CASE EVENT DATE: 20170717
